FAERS Safety Report 8095669-7 (Version None)
Quarter: 2012Q1

REPORT INFORMATION
  Report Type: 
  Country: None (occurrence: None)
  Receive Date: 20120129
  Receipt Date: 20111216
  Transmission Date: 20120608
  Serious: No
  Sender: FDA-Public Use
  Company Number: US-ABBOTT-11P-163-0883849-00

PATIENT
  Age: 49 Year
  Sex: Male

DRUGS (8)
  1. VERAPAMIL [Concomitant]
     Indication: ARTERIOSPASM CORONARY
  2. PLAVIX [Concomitant]
     Indication: ATRIAL FIBRILLATION
  3. HYDROCHLOROTHIAZIDE [Concomitant]
     Indication: ATRIAL FIBRILLATION
  4. LISINOPRIL [Concomitant]
     Indication: ATRIAL FIBRILLATION
  5. HUMIRA [Suspect]
     Indication: PSORIATIC ARTHROPATHY
     Dates: start: 20110401
  6. COUMADIN [Concomitant]
     Indication: ATRIAL FIBRILLATION
     Dosage: 5 MG: 5 TIMES A WEEK
  7. NITRO-BID [Concomitant]
     Indication: ANGINA PECTORIS
  8. SIMVASTATIN [Concomitant]
     Indication: ATRIAL FIBRILLATION

REACTIONS (1)
  - INAPPROPRIATE SCHEDULE OF DRUG ADMINISTRATION [None]
